FAERS Safety Report 5681069-3 (Version None)
Quarter: 2008Q1

REPORT INFORMATION
  Report Type: 
  Country: None (occurrence: None)
  Receive Date: 20080325
  Receipt Date: 20080314
  Transmission Date: 20080703
  Serious: Yes (Hospitalization)
  Sender: FDA-Public Use
  Company Number: 191012

PATIENT
  Age: 64 Year
  Sex: Female
  Weight: 56.6996 kg

DRUGS (5)
  1. AVONEX [Suspect]
     Indication: MULTIPLE SCLEROSIS
     Dosage: 30 UG;QW;IM
     Route: 030
     Dates: start: 19981201
  2. SYNTHROID [Concomitant]
  3. VITAMINS (NOS) [Concomitant]
  4. CALCIUM [Concomitant]
  5. METHOTREXATE [Concomitant]

REACTIONS (9)
  - BREAST CANCER FEMALE [None]
  - DEPRESSION [None]
  - FATIGUE [None]
  - INFLUENZA LIKE ILLNESS [None]
  - METASTASES TO LYMPH NODES [None]
  - MUSCULAR WEAKNESS [None]
  - OSTEOPOROSIS [None]
  - PYREXIA [None]
  - VISUAL ACUITY REDUCED [None]
